FAERS Safety Report 25007020 (Version 2)
Quarter: 2025Q1

REPORT INFORMATION
  Report Type: Spontaneous
  Country: IT (occurrence: IT)
  Receive Date: 20250225
  Receipt Date: 20250301
  Transmission Date: 20250409
  Serious: Yes (Life-Threatening, Hospitalization, Congenital Anomaly, Other)
  Sender: AUROBINDO
  Company Number: IT-MINISAL02-1024099

PATIENT
  Age: 57 Year
  Sex: Female

DRUGS (4)
  1. QUETIAPINE [Suspect]
     Active Substance: QUETIAPINE
     Indication: Product used for unknown indication
     Dosage: 250 MILLIGRAM, ONCE A DAY (THE PATIENT TOOK 10 25 MG TABLETS (TOTAL 250 MG))
     Route: 048
     Dates: start: 20221127, end: 20221127
  2. ESCITALOPRAM OXALATE [Suspect]
     Active Substance: ESCITALOPRAM OXALATE
     Indication: Product used for unknown indication
     Dosage: 440 MILLIGRAM, ONCE A DAY (THE PATIENT TOOK 22 20 MG TABLETS (TOTAL 440 MG))
     Route: 048
     Dates: start: 20221127, end: 20221127
  3. IBUPROFEN [Suspect]
     Active Substance: IBUPROFEN
     Indication: Product used for unknown indication
     Dosage: 4 GRAM, ONCE A DAY(10 TABLETS OF 400 MG (TOTAL 4G))
     Route: 048
     Dates: start: 20221127, end: 20221127
  4. FLURAZEPAM [Suspect]
     Active Substance: FLURAZEPAM HYDROCHLORIDE
     Indication: Product used for unknown indication
     Dosage: 450 MILLIGRAM, ONCE A DAY ( THE PATIENT TOOK 30 CAPSULES OF 15 MG (TOTAL 450 MG))
     Route: 048
     Dates: start: 20221127, end: 20221127

REACTIONS (3)
  - Drug abuse [Recovered/Resolved]
  - Intentional self-injury [Recovered/Resolved]
  - Sopor [Recovered/Resolved]

NARRATIVE: CASE EVENT DATE: 20221127
